FAERS Safety Report 6136826-6 (Version None)
Quarter: 2009Q1

REPORT INFORMATION
  Report Type: 
  Country: None (occurrence: None)
  Receive Date: 20090330
  Receipt Date: 20090323
  Transmission Date: 20090719
  Serious: Yes (Hospitalization)
  Sender: FDA-Public Use
  Company Number: JP-EISAI MEDICAL RESEARCH-E2090-00664-SPO-JP

PATIENT
  Sex: Female

DRUGS (4)
  1. EXCEGRAN [Suspect]
     Indication: CONVULSION
     Route: 048
     Dates: start: 20090108, end: 20090206
  2. GASTER [Suspect]
     Indication: GASTRIC ULCER
     Route: 048
     Dates: start: 20090109, end: 20090206
  3. EBASTEL [Concomitant]
     Indication: ECZEMA
     Route: 048
     Dates: start: 20081216
  4. EPADEL [Concomitant]

REACTIONS (1)
  - AGRANULOCYTOSIS [None]
